FAERS Safety Report 25270801 (Version 1)
Quarter: 2025Q2

REPORT INFORMATION
  Report Type: Spontaneous
  Country: US (occurrence: US)
  Receive Date: 20250505
  Receipt Date: 20250505
  Transmission Date: 20250716
  Serious: No
  Sender: ODIN PHARMACEUTICALS
  Company Number: USA--2024-US-000458

PATIENT
  Age: 82 Year
  Sex: Female

DRUGS (4)
  1. BRIMONIDINE TARTRATE [Suspect]
     Active Substance: BRIMONIDINE TARTRATE
     Dates: start: 20240610, end: 20240615
  2. TIMOLOL [Concomitant]
     Active Substance: TIMOLOL
  3. LATANOPROST [Concomitant]
     Active Substance: LATANOPROST
  4. PREDNISOLONE [Concomitant]
     Active Substance: PREDNISOLONE

REACTIONS (7)
  - Dry mouth [Unknown]
  - Burning sensation [Unknown]
  - Pain [Unknown]
  - Headache [Unknown]
  - Somnolence [Unknown]
  - Fatigue [Unknown]
  - Dry eye [Unknown]

NARRATIVE: CASE EVENT DATE: 20240610
